FAERS Safety Report 6567279-1 (Version None)
Quarter: 2010Q1

REPORT INFORMATION
  Report Type: 
  Country: None (occurrence: None)
  Receive Date: 20100202
  Receipt Date: 20100122
  Transmission Date: 20100710
  Serious: Yes (Hospitalization)
  Sender: FDA-Public Use
  Company Number: JP-ROCHE-681874

PATIENT
  Sex: Male

DRUGS (5)
  1. BEVACIZUMAB [Suspect]
     Indication: LARGE INTESTINE CARCINOMA
     Route: 041
     Dates: start: 20091022
  2. OXALIPLATIN [Suspect]
     Indication: LARGE INTESTINE CARCINOMA
     Dosage: DRUG REPORTED AS: ELPLAT(OXALIPLATIN)
     Route: 041
     Dates: start: 20091022
  3. FLUOROURACIL [Suspect]
     Indication: LARGE INTESTINE CARCINOMA
     Dosage: DRUG REPORTED AS: 5-FU(FLUOROURACIL)
     Route: 040
     Dates: start: 20091022
  4. FLUOROURACIL [Suspect]
     Dosage: DRUG REPORTED AS: 5-FU(FLUOROURACIL)
     Route: 041
     Dates: start: 20091022
  5. CALCIUM LEVOFOLINATE [Suspect]
     Indication: LARGE INTESTINE CARCINOMA
     Dosage: DRUG REPORTED AS: LEVOFOLINATE(LEVOFOLINATE CALCIUM)
     Route: 041
     Dates: start: 20091022

REACTIONS (1)
  - ANAPHYLACTIC SHOCK [None]
